FAERS Safety Report 25045724 (Version 5)
Quarter: 2025Q2

REPORT INFORMATION
  Report Type: Report from Study
  Country: CA (occurrence: CA)
  Receive Date: 20250306
  Receipt Date: 20250624
  Transmission Date: 20250717
  Serious: Yes (Hospitalization)
  Sender: TAKEDA
  Company Number: CA-TAKEDA-2025TUS022070

PATIENT
  Sex: Female

DRUGS (8)
  1. VEDOLIZUMAB [Suspect]
     Active Substance: VEDOLIZUMAB
     Indication: Crohn^s disease
  2. VEDOLIZUMAB [Suspect]
     Active Substance: VEDOLIZUMAB
  3. STELARA [Concomitant]
     Active Substance: USTEKINUMAB
     Dosage: UNK UNK, Q8WEEKS
     Dates: start: 20220425
  4. CLOZAPINE [Concomitant]
     Active Substance: CLOZAPINE
  5. SENOKOT [Concomitant]
     Active Substance: SENNOSIDES
  6. Colis [Concomitant]
  7. LEVOTHROID [Concomitant]
     Active Substance: LEVOTHYROXINE SODIUM
  8. LOSEC [Concomitant]
     Active Substance: OMEPRAZOLE

REACTIONS (3)
  - Fall [Recovering/Resolving]
  - Asthenia [Unknown]
  - Vomiting [Unknown]
